FAERS Safety Report 8560246-8 (Version None)
Quarter: 2012Q3

REPORT INFORMATION
  Report Type: 
  Country: None (occurrence: None)
  Receive Date: 20120802
  Receipt Date: 20120731
  Transmission Date: 20120928
  Serious: Yes (Hospitalization)
  Sender: FDA-Public Use
  Company Number: DE-ROCHE-1050366

PATIENT
  Age: 77 Year
  Sex: Female
  Weight: 60.5 kg

DRUGS (6)
  1. NOVALGIN [Concomitant]
     Dates: start: 20111101
  2. ENALAPRIL MALEATE [Concomitant]
     Dosage: 10/25 MG
     Dates: start: 20050201
  3. TILIDINE [Concomitant]
     Dosage: DRUG NAME: TILIDIN
     Dates: start: 20111101
  4. OMEPRAZOLE [Concomitant]
     Dates: start: 20050201
  5. SIMVASTATIN [Concomitant]
     Dates: start: 20050201
  6. VEMURAFENIB [Suspect]
     Indication: MALIGNANT MELANOMA
     Dosage: LAST DOSE PRIOR TO SAE: 13/MAR/2012
     Route: 048
     Dates: start: 20120109, end: 20120314

REACTIONS (4)
  - ACUTE ABDOMEN [None]
  - PANCREATIC DISORDER [None]
  - ABDOMINAL PAIN [None]
  - CHOLESTASIS [None]
